FAERS Safety Report 4339461-5 (Version None)
Quarter: 2004Q2

REPORT INFORMATION
  Report Type: 
  Country: None (occurrence: None)
  Receive Date: 20040412
  Receipt Date: 20040326
  Transmission Date: 20050107
  Serious: Yes (Other)
  Sender: FDA-Public Use
  Company Number: 2004IM00505

PATIENT
  Sex: Male

DRUGS (1)
  1. ADVAFERON  (A643_INTERFERON ALFACON-1) [Suspect]
     Indication: HEPATITIS C
     Dosage: 12 MU; QOD; SUBCUTANEOUS
     Route: 058
     Dates: start: 20030101

REACTIONS (1)
  - PANCYTOPENIA [None]
